FAERS Safety Report 4822322-2 (Version None)
Quarter: 2005Q4

REPORT INFORMATION
  Report Type: 
  Country: None (occurrence: None)
  Receive Date: 20051103
  Receipt Date: 20051019
  Transmission Date: 20060501
  Serious: Yes (Hospitalization)
  Sender: FDA-Public Use
  Company Number: USA0509108307

PATIENT
  Age: 46 Year
  Sex: Male
  Weight: 91 kg

DRUGS (8)
  1. GEMZAR [Suspect]
     Indication: PANCREATIC CARCINOMA
     Dosage: 1000 MG/M2
     Dates: start: 20050101
  2. INSULIN [Concomitant]
  3. NEXIUM [Concomitant]
  4. ATENOLOL [Concomitant]
  5. METFORMIN [Concomitant]
  6. METOCLOPRAMIDE [Concomitant]
  7. TARCEVA [Concomitant]
  8. ACTOS [Concomitant]

REACTIONS (9)
  - CELLULITIS [None]
  - CHEST PAIN [None]
  - DEVICE FAILURE [None]
  - EXTRAVASATION [None]
  - INFECTION [None]
  - INJECTION SITE REACTION [None]
  - LEUKOCYTOSIS [None]
  - OSTEOMYELITIS [None]
  - PAIN [None]
